FAERS Safety Report 5788976-1 (Version None)
Quarter: 2008Q2

REPORT INFORMATION
  Report Type: 
  Country: None (occurrence: None)
  Receive Date: 20080623
  Receipt Date: 20080611
  Transmission Date: 20081010
  Serious: Yes (Other)
  Sender: FDA-Public Use
  Company Number: 2008AL007167

PATIENT
  Age: 75 Year
  Sex: Female

DRUGS (3)
  1. DICLOFENAC SODIUM [Suspect]
     Indication: NEURALGIA
     Dosage: 75 MG;QD
     Dates: start: 20080414, end: 20080428
  2. CALCICHEW D3 [Concomitant]
  3. ALENDRONIC ACID [Concomitant]

REACTIONS (1)
  - PANCYTOPENIA [None]
